FAERS Safety Report 4684055-5 (Version None)
Quarter: 2005Q2

REPORT INFORMATION
  Report Type: 
  Country: None (occurrence: None)
  Receive Date: 20050607
  Receipt Date: 20050531
  Transmission Date: 20051028
  Serious: Yes (Hospitalization)
  Sender: FDA-Public Use
  Company Number: PHFR2005IE02005

PATIENT
  Age: 41 Year
  Sex: Male

DRUGS (2)
  1. CLOZARIL [Suspect]
     Indication: SCHIZOPHRENIA
     Dosage: 700MG PER DAY
     Route: 048
     Dates: start: 19970627
  2. CLOZARIL [Suspect]
     Dosage: 1000MG/DAY
     Route: 048

REACTIONS (5)
  - BALANCE DISORDER [None]
  - CONVULSION [None]
  - FALL [None]
  - JOINT DISLOCATION [None]
  - SYNCOPE [None]
